FAERS Safety Report 6639550-6 (Version None)
Quarter: 2010Q1

REPORT INFORMATION
  Report Type: 
  Country: None (occurrence: None)
  Receive Date: 20100318
  Receipt Date: 20100315
  Transmission Date: 20100710
  Serious: Yes (Other)
  Sender: FDA-Public Use
  Company Number: US-RB-004870-10

PATIENT
  Age: 62 Year
  Sex: Male

DRUGS (3)
  1. MUCINEX DM [Suspect]
     Indication: RESPIRATORY TRACT CONGESTION
     Route: 048
     Dates: start: 20091101
  2. MUCINEX DM [Suspect]
     Route: 048
     Dates: start: 20100201
  3. MUCINEX DM [Suspect]
     Route: 048
     Dates: start: 20100201

REACTIONS (1)
  - BLOOD GLUCOSE DECREASED [None]
